FAERS Safety Report 10062752 (Version 1)
Quarter: 2014Q2

REPORT INFORMATION
  Report Type: Report from Study
  Country: CA (occurrence: CA)
  Receive Date: 20140407
  Receipt Date: 20140407
  Transmission Date: 20141212
  Serious: Yes (Hospitalization)
  Sender: FDA-Public Use
  Company Number: CA-JNJFOC-20140401307

PATIENT
  Age: 27 Year
  Sex: Female
  Weight: 82 kg

DRUGS (3)
  1. REMICADE [Suspect]
     Indication: HIDRADENITIS
     Dosage: HAD 20 INFUSIONS
     Route: 042
  2. REMICADE [Suspect]
     Indication: CROHN^S DISEASE
     Dosage: HAD 20 INFUSIONS
     Route: 042
  3. IMURAN [Concomitant]
     Route: 065

REACTIONS (1)
  - Hidradenitis [Not Recovered/Not Resolved]
